FAERS Safety Report 23530569 (Version 1)
Quarter: 2024Q1

REPORT INFORMATION
  Report Type: Spontaneous
  Country: FR (occurrence: FR)
  Receive Date: 20240216
  Receipt Date: 20240216
  Transmission Date: 20240410
  Serious: Yes (Hospitalization)
  Sender: FDA-Public Use
  Company Number: None

PATIENT
  Age: 72 Year
  Sex: Female
  Weight: 55 kg

DRUGS (4)
  1. BISOPROLOL [Suspect]
     Active Substance: BISOPROLOL\BISOPROLOL FUMARATE
     Indication: Hypertension
     Dosage: BISOPROLOL (HEMIFUMARATE DE)
     Route: 048
     Dates: start: 202310, end: 202311
  2. LOPERAMIDE [Concomitant]
     Active Substance: LOPERAMIDE
     Indication: Ileostomy
     Route: 048
  3. MORPHINE SULFATE [Suspect]
     Active Substance: MORPHINE SULFATE
     Indication: Pain
     Dosage: AS NECESSARY
     Route: 048
     Dates: start: 202310, end: 202311
  4. SKENAN [Suspect]
     Active Substance: MORPHINE SULFATE
     Indication: Pain
     Route: 048
     Dates: start: 20231019, end: 202311

REACTIONS (3)
  - Miosis [Not Recovered/Not Resolved]
  - Bradycardia [Recovered/Resolved]
  - Coma [Recovered/Resolved]

NARRATIVE: CASE EVENT DATE: 20231111
